FAERS Safety Report 8818502 (Version 3)
Quarter: 2014Q2

REPORT INFORMATION
  Report Type: Report from Study
  Country: CA (occurrence: CA)
  Receive Date: 20121001
  Receipt Date: 20140619
  Transmission Date: 20141212
  Serious: Yes (Other)
  Sender: FDA-Public Use
  Company Number: CA-ROCHE-1137512

PATIENT
  Age: 53 Year
  Sex: Female
  Weight: 99.88 kg

DRUGS (14)
  1. RITUXAN [Suspect]
     Indication: RHEUMATOID ARTHRITIS
     Dosage: DAY 1, 15
     Route: 042
     Dates: start: 20120216
  2. METHOTREXATE [Concomitant]
     Route: 058
  3. PREDNISONE [Concomitant]
     Route: 065
  4. PANTOLOC [Concomitant]
     Route: 065
  5. ACID FOLIC [Concomitant]
     Route: 065
  6. LIPIDIL [Concomitant]
  7. CELEBREX [Concomitant]
  8. ATIVAN [Concomitant]
  9. HYDROXYCHLOROQUINE [Concomitant]
  10. TEVA-HYDROCHLOROTHIAZIDE [Concomitant]
  11. ELAVIL (CANADA) [Concomitant]
  12. TYLENOL [Concomitant]
     Route: 048
     Dates: start: 20120216
  13. BENADRYL (CANADA) [Concomitant]
     Route: 048
     Dates: start: 20120216
  14. SOLU-MEDROL [Concomitant]
     Route: 042
     Dates: start: 20120216

REACTIONS (3)
  - Pruritus [Recovering/Resolving]
  - Acne [Recovering/Resolving]
  - Blood pressure increased [Unknown]
